FAERS Safety Report 25382417 (Version 2)
Quarter: 2025Q2

REPORT INFORMATION
  Report Type: Spontaneous
  Country: JP (occurrence: JP)
  Receive Date: 20250601
  Receipt Date: 20250602
  Transmission Date: 20250716
  Serious: Yes (Other)
  Sender: UCB
  Company Number: JP-UCBJ-CD202506987UCBPHAPROD

PATIENT

DRUGS (1)
  1. FINTEPLA [Suspect]
     Active Substance: FENFLURAMINE
     Indication: Lennox-Gastaut syndrome

REACTIONS (7)
  - Epilepsy [Unknown]
  - Coronavirus infection [Unknown]
  - Decreased appetite [Unknown]
  - Tinea infection [Unknown]
  - Poriomania [Unknown]
  - Agitation [Unknown]
  - Off label use [Unknown]
